FAERS Safety Report 8920085 (Version 2)
Quarter: 2012Q4

REPORT INFORMATION
  Report Type: Report from Study
  Country: US (occurrence: US)
  Receive Date: 20121121
  Receipt Date: 20121212
  Transmission Date: 20130627
  Serious: Yes (Hospitalization)
  Sender: FDA-Public Use
  Company Number: US-009507513-1211USA007666

PATIENT
  Age: 56 Year
  Sex: Male
  Weight: 85.3 kg

DRUGS (1)
  1. VORINOSTAT [Suspect]
     Indication: MALIGNANT MELANOMA
     Dosage: 300 mg, bid, on days 1-3, 8-10, 15-17 and 22-24
     Route: 048
     Dates: start: 20121102, end: 20121104

REACTIONS (5)
  - Nephrolithiasis [Recovered/Resolved]
  - Haematuria [Recovered/Resolved]
  - Urinary tract obstruction [Recovered/Resolved]
  - Flank pain [Recovered/Resolved]
  - Blood alkaline phosphatase increased [Recovered/Resolved]
